FAERS Safety Report 19927122 (Version 1)
Quarter: 2021Q4

REPORT INFORMATION
  Report Type: Spontaneous
  Country: CN (occurrence: CN)
  Receive Date: 20211006
  Receipt Date: 20211006
  Transmission Date: 20220303
  Serious: Yes (Hospitalization)
  Sender: FDA-Public Use
  Company Number: CN-BAXTER-2021BAX026931

PATIENT
  Age: 17 Year
  Sex: Male
  Weight: 57.6 kg

DRUGS (12)
  1. CYCLOPHOSPHAMIDE [Suspect]
     Active Substance: CYCLOPHOSPHAMIDE
     Indication: B-cell type acute leukaemia
     Dosage: CYCLOPHOSPHAMIDE 500 MG + 0.9% SODIUM CHLORIDE 500 ML
     Route: 041
     Dates: start: 20200105, end: 20200107
  2. CYCLOPHOSPHAMIDE [Suspect]
     Active Substance: CYCLOPHOSPHAMIDE
     Dosage: DOSE RE-INTRODUCED; CYCLOPHOSPHAMIDE + 0.9% SODIUM CHLORIDE
     Route: 041
  3. SODIUM CHLORIDE [Suspect]
     Active Substance: SODIUM CHLORIDE
     Indication: Medication dilution
     Dosage: CYCLOPHOSPHAMIDE 500 MG + 0.9% SODIUM CHLORIDE 500 ML
     Route: 041
     Dates: start: 20200105, end: 20200107
  4. SODIUM CHLORIDE [Suspect]
     Active Substance: SODIUM CHLORIDE
     Dosage: DOSE RE-INTRODUCED; CYCLOPHOSPHAMIDE + 0.9% SODIUM CHLORIDE
     Route: 041
  5. SODIUM CHLORIDE [Suspect]
     Active Substance: SODIUM CHLORIDE
     Dosage: VINORELBINE TARTRATE 40 MG + 0.9% SODIUM CHLORIDE 125 ML
     Route: 041
     Dates: start: 20200108, end: 20200115
  6. SODIUM CHLORIDE [Suspect]
     Active Substance: SODIUM CHLORIDE
     Dosage: DOSE RE-INTRODUCED; VINORELBINE TARTRATE + 0.9% SODIUM CHLORIDE
     Route: 041
  7. DEXTROSE [Suspect]
     Active Substance: DEXTROSE
     Indication: Medication dilution
     Dosage: PIRARUBICIN HYDROCHLORIDE 40 MG + 5% GLUCOSE 100 ML
     Route: 041
     Dates: start: 20200108, end: 20200108
  8. DEXTROSE [Suspect]
     Active Substance: DEXTROSE
     Dosage: DOSE RE-INTRODUCED; PIRARUBICIN HYDROCHLORIDE + 5% GLUCOSE
     Route: 041
  9. VINORELBINE TARTRATE [Suspect]
     Active Substance: VINORELBINE TARTRATE
     Indication: B-cell type acute leukaemia
     Dosage: VINORELBINE TARTRATE 40 MG + 0.9% SODIUM CHLORIDE 125 ML
     Route: 041
     Dates: start: 20200108, end: 20200115
  10. VINORELBINE TARTRATE [Suspect]
     Active Substance: VINORELBINE TARTRATE
     Dosage: DOSE RE-INTRODUCED; VINORELBINE TARTRATE + 0.9% SODIUM CHLORIDE
     Route: 041
  11. PIRARUBICIN HYDROCHLORIDE [Suspect]
     Active Substance: PIRARUBICIN HYDROCHLORIDE
     Indication: B-cell type acute leukaemia
     Dosage: PIRARUBICIN HYDROCHLORIDE 40 MG + 5% GLUCOSE 100 ML
     Route: 041
     Dates: start: 20200108, end: 20200108
  12. PIRARUBICIN HYDROCHLORIDE [Suspect]
     Active Substance: PIRARUBICIN HYDROCHLORIDE
     Dosage: DOSE RE-INTRODUCED; PIRARUBICIN HYDROCHLORIDE + 5% GLUCOSE
     Route: 041

REACTIONS (2)
  - Myelosuppression [Recovered/Resolved]
  - Thrombocytopenia [Recovered/Resolved]

NARRATIVE: CASE EVENT DATE: 20200118
